FAERS Safety Report 20387772 (Version 4)
Quarter: 2022Q1

REPORT INFORMATION
  Report Type: Report from Study
  Country: US (occurrence: US)
  Receive Date: 20220127
  Receipt Date: 20220222
  Transmission Date: 20220423
  Serious: Yes (Other)
  Sender: FDA-Public Use
  Company Number: US-CELGENE-USA-20220105338

PATIENT
  Sex: Male
  Weight: 90.800 kg

DRUGS (2)
  1. REVLIMID [Suspect]
     Active Substance: LENALIDOMIDE
     Indication: Plasma cell myeloma
     Dosage: 20 MILLIGRAM
     Route: 048
     Dates: start: 202112
  2. DEXAMETHASONE [Suspect]
     Active Substance: DEXAMETHASONE
     Indication: Product used for unknown indication
     Route: 065

REACTIONS (6)
  - Muscular weakness [Unknown]
  - Psychotic disorder [Unknown]
  - Rash pruritic [Recovered/Resolved]
  - Fatigue [Unknown]
  - Dry skin [Unknown]
  - Anxiety [Not Recovered/Not Resolved]
